FAERS Safety Report 11661905 (Version 1)
Quarter: 2015Q4

REPORT INFORMATION
  Report Type: Spontaneous
  Country: US (occurrence: US)
  Receive Date: 20151026
  Receipt Date: 20151026
  Transmission Date: 20160304
  Serious: Yes (Hospitalization)
  Sender: FDA-Public Use
  Company Number: US-JNJFOC-20150721842

PATIENT
  Age: 70 Year
  Sex: Male
  Weight: 103 kg

DRUGS (18)
  1. COUMADIN [Concomitant]
     Active Substance: WARFARIN SODIUM
     Indication: ATRIAL FIBRILLATION
     Dosage: THURSDAY
     Route: 048
  2. VITAMIN D [Concomitant]
     Active Substance: CHOLECALCIFEROL
     Indication: VITAMIN D DECREASED
  3. PRAVASTATIN [Concomitant]
     Active Substance: PRAVASTATIN\PRAVASTATIN SODIUM
     Indication: HYPERCHOLESTEROLAEMIA
     Route: 048
  4. NORVASC [Concomitant]
     Active Substance: AMLODIPINE BESYLATE
  5. LANTUS [Concomitant]
     Active Substance: INSULIN GLARGINE
     Indication: DIABETES MELLITUS
     Route: 058
  6. IRON [Concomitant]
     Active Substance: IRON
     Indication: BLOOD IRON DECREASED
  7. TOPROL XL [Concomitant]
     Active Substance: METOPROLOL SUCCINATE
     Indication: HYPERTENSION
  8. ASA [Concomitant]
     Active Substance: ASPIRIN
     Indication: ARRHYTHMIA PROPHYLAXIS
     Route: 048
  9. MULTIVITAMINS [Concomitant]
     Active Substance: VITAMINS
  10. IMBRUVICA [Suspect]
     Active Substance: IBRUTINIB
     Indication: MANTLE CELL LYMPHOMA
     Route: 048
     Dates: start: 20141113, end: 20150213
  11. LASIX [Concomitant]
     Active Substance: FUROSEMIDE
     Indication: SWELLING
     Dosage: AS NECESSARY
     Route: 048
  12. TRICOR [Concomitant]
     Active Substance: FENOFIBRATE
     Route: 048
  13. VALSARTAN AND HYDROCHLOROTHIAZIDE [Concomitant]
     Active Substance: HYDROCHLOROTHIAZIDE\VALSARTAN
     Indication: HYPERTENSION
     Route: 048
  14. IMBRUVICA [Suspect]
     Active Substance: IBRUTINIB
     Indication: CHRONIC LYMPHOCYTIC LEUKAEMIA
     Route: 048
     Dates: start: 20150608
  15. IMBRUVICA [Suspect]
     Active Substance: IBRUTINIB
     Indication: CHRONIC LYMPHOCYTIC LEUKAEMIA
     Route: 048
     Dates: start: 20141113, end: 20150213
  16. IMBRUVICA [Suspect]
     Active Substance: IBRUTINIB
     Indication: MANTLE CELL LYMPHOMA
     Route: 048
     Dates: start: 20150608
  17. COUMADIN [Concomitant]
     Active Substance: WARFARIN SODIUM
     Indication: ATRIAL FIBRILLATION
     Dosage: 7.5 MG ON THURSDAY
     Route: 048
  18. DIGOX [Concomitant]
     Active Substance: DIGOXIN
     Indication: HEART RATE
     Route: 048

REACTIONS (16)
  - Atrial fibrillation [Recovering/Resolving]
  - Bronchitis [Unknown]
  - Cough [Unknown]
  - Thrombocytopenia [Unknown]
  - Hypertension [Unknown]
  - Iron deficiency anaemia [Unknown]
  - Hyperlipidaemia [Unknown]
  - Coagulopathy [Unknown]
  - Cardiomyopathy [Unknown]
  - Haemoptysis [Unknown]
  - Hyperglycaemia [Unknown]
  - Cardiac failure congestive [Unknown]
  - Leukocytosis [Unknown]
  - Chronic kidney disease [Unknown]
  - Nausea [Unknown]
  - Dizziness postural [Unknown]

NARRATIVE: CASE EVENT DATE: 201502
